FAERS Safety Report 10371655 (Version 2)
Quarter: 2014Q3

REPORT INFORMATION
  Report Type: Report from Study
  Country: AR (occurrence: AR)
  Receive Date: 20140808
  Receipt Date: 20140909
  Transmission Date: 20150326
  Serious: Yes (Other)
  Sender: FDA-Public Use
  Company Number: PHHY2014AR097853

PATIENT
  Sex: Male

DRUGS (3)
  1. EXFORGE [Suspect]
     Active Substance: AMLODIPINE BESYLATE\VALSARTAN
     Indication: HYPERTENSION
     Dosage: 1 DF (160/10 MG), DAILY
     Route: 048
     Dates: start: 2013, end: 2013
  2. EXFORGE [Suspect]
     Active Substance: AMLODIPINE BESYLATE\VALSARTAN
     Dosage: 1 DF (160/10 MG), DAILY
     Route: 048
     Dates: start: 201407
  3. CLONAZEPAM. [Suspect]
     Active Substance: CLONAZEPAM

REACTIONS (6)
  - Stress [Recovered/Resolved]
  - Nervousness [Recovered/Resolved]
  - Overweight [Recovered/Resolved]
  - Weight decreased [Recovered/Resolved]
  - Arterial wall hypertrophy [Recovered/Resolved]
  - Blood pressure increased [Recovered/Resolved]

NARRATIVE: CASE EVENT DATE: 2013
